FAERS Safety Report 25336794 (Version 1)
Quarter: 2025Q2

REPORT INFORMATION
  Report Type: Spontaneous
  Country: US (occurrence: None)
  Receive Date: 20250520
  Receipt Date: 20250520
  Transmission Date: 20250717
  Serious: Yes (Hospitalization)
  Sender: FDA-CTU
  Company Number: None

PATIENT
  Sex: Female

DRUGS (8)
  1. TEZSPIRE [Suspect]
     Active Substance: TEZEPELUMAB-EKKO
     Indication: Asthma
     Route: 058
     Dates: start: 20240118
  2. ADVAIR DISKU AER 500/50 [Concomitant]
  3. QVAR REDIHA AER [Concomitant]
  4. RITALIN [Concomitant]
     Active Substance: METHYLPHENIDATE HYDROCHLORIDE
  5. VITAMIN B-12TAB [Concomitant]
  6. VITAMIN B-2 [Concomitant]
  7. VITAMIN D2 TAB 2000UNIT [Concomitant]
  8. VITAMIN D3 CAP 50000UNT [Concomitant]

REACTIONS (4)
  - Asthma [None]
  - Impaired quality of life [None]
  - Pyrexia [None]
  - Infection [None]
